FAERS Safety Report 25916166 (Version 2)
Quarter: 2025Q4

REPORT INFORMATION
  Report Type: Spontaneous
  Country: EU (occurrence: EU)
  Receive Date: 20251014
  Receipt Date: 20251110
  Transmission Date: 20260117
  Serious: Yes (Disabling, Other)
  Sender: ACCORD
  Company Number: EU-PFIZER INC-PV202500045572

PATIENT
  Age: 68 Year
  Sex: Male

DRUGS (9)
  1. CARBOPLATIN [Suspect]
     Active Substance: CARBOPLATIN
     Indication: Metastases to bone
     Dosage: 8 CYCLICAL
  2. ALIMTA [Suspect]
     Active Substance: PEMETREXED DISODIUM
     Indication: Metastases to bone
     Dosage: 8 CYCLICAL
  3. PEMBROLIZUMAB [Suspect]
     Active Substance: PEMBROLIZUMAB
     Indication: Metastases to bone
     Dosage: 8 CYCLICAL
  4. ALIMTA [Suspect]
     Active Substance: PEMETREXED DISODIUM
     Indication: Metastases to lung
     Dosage: 8 CYCLICAL
  5. PEMBROLIZUMAB [Suspect]
     Active Substance: PEMBROLIZUMAB
     Indication: Metastases to lung
     Dosage: 8 CYCLICAL
  6. CARBOPLATIN [Suspect]
     Active Substance: CARBOPLATIN
     Indication: Metastases to muscle
     Dosage: 8 CYCLICAL
  7. PEMBROLIZUMAB [Suspect]
     Active Substance: PEMBROLIZUMAB
     Indication: Metastases to muscle
     Dosage: 8 CYCLICAL
  8. ALIMTA [Suspect]
     Active Substance: PEMETREXED DISODIUM
     Indication: Metastases to muscle
     Dosage: 8 CYCLICAL
  9. CARBOPLATIN [Suspect]
     Active Substance: CARBOPLATIN
     Indication: Metastases to lung
     Dosage: 8 CYCLICAL

REACTIONS (1)
  - Mononeuropathy multiplex [Recovering/Resolving]
